FAERS Safety Report 17474439 (Version 2)
Quarter: 2020Q1

REPORT INFORMATION
  Report Type: Spontaneous
  Country: CH (occurrence: CH)
  Receive Date: 20200228
  Receipt Date: 20200310
  Transmission Date: 20200409
  Serious: Yes (Hospitalization, Other)
  Sender: FDA-Public Use
  Company Number: CH-PFIZER INC-2020083850

PATIENT
  Age: 58 Year
  Sex: Female

DRUGS (6)
  1. BRIVIACT [Suspect]
     Active Substance: BRIVARACETAM
     Dosage: 25 MG, 2X/DAY
     Route: 048
     Dates: start: 201906
  2. DEPAKINE CHRONO [Suspect]
     Active Substance: VALPROATE SODIUM
     Dosage: 500 MG, 2X/DAY
  3. ZINC GLUCONATE [Concomitant]
     Active Substance: ZINC GLUCONATE
     Dosage: UNK
     Dates: start: 20200212
  4. LYRICA [Suspect]
     Active Substance: PREGABALIN
     Dosage: 100 MG, 2X/DAY FOR MANY YEARS
     Route: 048
  5. MAGNESIUM SULFATE. [Concomitant]
     Active Substance: MAGNESIUM SULFATE
     Dosage: UNK, AS NEEDED
  6. DAFALGAN [Concomitant]
     Active Substance: ACETAMINOPHEN
     Dosage: UNK, AS NEEDED

REACTIONS (1)
  - Chest discomfort [Not Recovered/Not Resolved]

NARRATIVE: CASE EVENT DATE: 201906
